FAERS Safety Report 16001605 (Version 1)
Quarter: 2019Q1

REPORT INFORMATION
  Report Type: Report from Study
  Country: US (occurrence: US)
  Receive Date: 20190225
  Receipt Date: 20190225
  Transmission Date: 20190418
  Serious: Yes (Disabling, Other)
  Sender: FDA-Public Use
  Company Number: US-REGENERON PHARMACEUTICALS, INC.-2019-18676

PATIENT

DRUGS (1)
  1. EYLEA [Suspect]
     Active Substance: AFLIBERCEPT
     Indication: MACULAR DEGENERATION
     Dosage: 2 MG, Q4W OU
     Route: 031

REACTIONS (5)
  - Blindness unilateral [Recovering/Resolving]
  - Pupillary disorder [Recovering/Resolving]
  - Vision blurred [Recovering/Resolving]
  - Eye disorder [Recovering/Resolving]
  - Foreign body sensation in eyes [Recovering/Resolving]
